FAERS Safety Report 6964449-5 (Version None)
Quarter: 2010Q3

REPORT INFORMATION
  Report Type: 
  Country: None (occurrence: None)
  Receive Date: 20100903
  Receipt Date: 20100826
  Transmission Date: 20110219
  Serious: Yes (Death)
  Sender: FDA-Public Use
  Company Number: US-PFIZER INC-2010096534

PATIENT
  Sex: Male
  Weight: 86.182 kg

DRUGS (1)
  1. VIAGRA [Suspect]
     Indication: ERECTILE DYSFUNCTION
     Dosage: 50 MG TO 100 MG, AS NEEDED
     Route: 048
     Dates: start: 20080108, end: 20100716

REACTIONS (1)
  - CARDIOVASCULAR DISORDER [None]
